FAERS Safety Report 7506153-0 (Version None)
Quarter: 2011Q2

REPORT INFORMATION
  Report Type: 
  Country: None (occurrence: None)
  Receive Date: 20110526
  Receipt Date: 20110516
  Transmission Date: 20111010
  Serious: Yes (Hospitalization)
  Sender: FDA-Public Use
  Company Number: US-MYLANLABS-2011S1005713

PATIENT
  Age: 69 Year
  Sex: Female

DRUGS (11)
  1. METOPROLOL TARTRATE [Suspect]
     Indication: BLOOD PRESSURE INCREASED
     Route: 048
     Dates: start: 20110110
  2. METOPROLOL TARTRATE [Suspect]
     Route: 048
     Dates: start: 20110110
  3. CENTRUM SILVER [Concomitant]
  4. VITAMIN D [Concomitant]
  5. OMEGA III [Concomitant]
  6. METOPROLOL TARTRATE [Suspect]
     Indication: ARRHYTHMIA
     Route: 048
     Dates: start: 20110110
  7. METOPROLOL TARTRATE [Suspect]
     Indication: BLOOD PRESSURE DIASTOLIC INCREASED
     Route: 048
     Dates: start: 20110110
  8. METOPROLOL TARTRATE [Suspect]
     Route: 048
     Dates: start: 20110110
  9. ARIMIDEX [Concomitant]
     Indication: BREAST CANCER
     Route: 048
     Dates: start: 20080101
  10. METOPROLOL TARTRATE [Suspect]
     Route: 048
     Dates: start: 20110110
  11. SYNTHROID [Concomitant]
     Indication: THYROID DISORDER
     Route: 048
     Dates: start: 19910101

REACTIONS (1)
  - PANCREATITIS CHRONIC [None]
